FAERS Safety Report 5148071-1 (Version None)
Quarter: 2006Q4

REPORT INFORMATION
  Report Type: 
  Country: None (occurrence: None)
  Receive Date: 20061110
  Receipt Date: 20061106
  Transmission Date: 20070319
  Serious: Yes (Other)
  Sender: FDA-Public Use
  Company Number: CH-BAYER-200615607GDS

PATIENT
  Sex: Male

DRUGS (4)
  1. MOXIFLOXACIN HCL [Suspect]
     Indication: CHRONIC SINUSITIS
     Route: 048
     Dates: start: 20060201, end: 20061024
  2. SEREVENT [Concomitant]
     Indication: CHRONIC SINUSITIS
     Route: 055
     Dates: start: 20060201, end: 20061024
  3. RHINOCORT [Concomitant]
     Indication: CHRONIC SINUSITIS
     Route: 045
     Dates: start: 20060201, end: 20061024
  4. VITAMIN E [Concomitant]
     Indication: DRUG USE FOR UNKNOWN INDICATION
     Route: 048

REACTIONS (3)
  - MUSCLE CONTRACTIONS INVOLUNTARY [None]
  - SLEEP DISORDER [None]
  - TREMOR [None]
